FAERS Safety Report 5708802-6 (Version None)
Quarter: 2008Q2

REPORT INFORMATION
  Report Type: 
  Country: None (occurrence: None)
  Receive Date: 20080416
  Receipt Date: 20080404
  Transmission Date: 20081010
  Serious: Yes (Other)
  Sender: FDA-Public Use
  Company Number: 163-21880-08010889

PATIENT
  Age: 87 Year
  Sex: Female

DRUGS (7)
  1. REVLIMID [Suspect]
     Indication: MULTIPLE MYELOMA
     Dosage: 10 MG, DAILY X21 DAYS AS DIRECTED, ORAL, 5 MG, DAILY FOR 21 DAYS, ORAL, 5 MG, QOD, ORAL
     Route: 048
     Dates: start: 20071109, end: 20071201
  2. REVLIMID [Suspect]
     Indication: MULTIPLE MYELOMA
     Dosage: 10 MG, DAILY X21 DAYS AS DIRECTED, ORAL, 5 MG, DAILY FOR 21 DAYS, ORAL, 5 MG, QOD, ORAL
     Route: 048
     Dates: start: 20071201
  3. ZANTAC [Concomitant]
  4. ARANESP [Concomitant]
  5. SPIRA (SPIRAMYCIN) [Concomitant]
  6. PLAVIX [Concomitant]
  7. LISINOPRIL [Concomitant]

REACTIONS (12)
  - BRONCHITIS [None]
  - CONVULSION [None]
  - FATIGUE [None]
  - GROIN ABSCESS [None]
  - LABORATORY TEST ABNORMAL [None]
  - MUSCLE SPASMS [None]
  - MYALGIA [None]
  - NAUSEA [None]
  - NEUROPATHY PERIPHERAL [None]
  - NEUTROPENIA [None]
  - VIRAL INFECTION [None]
  - VISION BLURRED [None]
